FAERS Safety Report 5685187-5 (Version None)
Quarter: 2008Q1

REPORT INFORMATION
  Report Type: 
  Country: None (occurrence: None)
  Receive Date: 20080328
  Receipt Date: 20080319
  Transmission Date: 20080703
  Serious: Yes (Other)
  Sender: FDA-Public Use
  Company Number: IE-PFIZER INC-2007096881

PATIENT
  Age: 18 Year
  Sex: Male

DRUGS (4)
  1. LUSTRAL [Suspect]
     Route: 048
     Dates: start: 20071025, end: 20071101
  2. RHINOCORT [Concomitant]
     Route: 055
  3. VENTOLIN [Concomitant]
     Route: 055
     Dates: start: 20060101, end: 20071101
  4. SYMBICORT [Concomitant]
     Route: 055

REACTIONS (3)
  - COUGH [None]
  - SENSATION OF FOREIGN BODY [None]
  - THROAT TIGHTNESS [None]
